FAERS Safety Report 5701049-9 (Version None)
Quarter: 2008Q2

REPORT INFORMATION
  Report Type: 
  Country: None (occurrence: None)
  Receive Date: 20080410
  Receipt Date: 20080331
  Transmission Date: 20081010
  Serious: Yes (Other)
  Sender: FDA-Public Use
  Company Number: ES-ROCHE-548652

PATIENT
  Age: 39 Year
  Sex: Male

DRUGS (2)
  1. PEGYLATED INTERFERON NOS [Suspect]
     Route: 065
  2. RIBAVIRIN [Suspect]
     Route: 065

REACTIONS (1)
  - PORTAL VEIN THROMBOSIS [None]
